FAERS Safety Report 23325914 (Version 2)
Quarter: 2024Q1

REPORT INFORMATION
  Report Type: Spontaneous
  Country: JP (occurrence: JP)
  Receive Date: 20231221
  Receipt Date: 20240122
  Transmission Date: 20240410
  Serious: Yes (Life-Threatening, Other)
  Sender: FDA-Public Use
  Company Number: JP-MYLANLABS-2023M1134090

PATIENT
  Age: 45 Year
  Sex: Male

DRUGS (8)
  1. CEFTRIAXONE SODIUM [Suspect]
     Active Substance: CEFTRIAXONE SODIUM
     Indication: Brain abscess
     Dosage: 2 GRAM, BID
     Route: 042
     Dates: start: 20231013, end: 20231106
  2. PREGABALIN [Suspect]
     Active Substance: PREGABALIN
     Indication: Tenosynovitis
     Dosage: 25 MILLIGRAM, QD
     Route: 048
     Dates: start: 20231005, end: 20231105
  3. METRONIDAZOLE [Suspect]
     Active Substance: METRONIDAZOLE
     Indication: Brain abscess
     Dosage: 500 MILLIGRAM, TID
     Route: 042
     Dates: start: 20231013, end: 20231027
  4. OMEPRAZOLE [Concomitant]
     Active Substance: OMEPRAZOLE
     Indication: Product used for unknown indication
     Dosage: UNK
     Route: 048
     Dates: start: 20231005, end: 20231106
  5. ACETAMINOPHEN\TRAMADOL HYDROCHLORIDE [Concomitant]
     Active Substance: ACETAMINOPHEN\TRAMADOL HYDROCHLORIDE
     Indication: Product used for unknown indication
     Dosage: UNK
     Route: 048
     Dates: start: 20231005, end: 20231106
  6. METHYLCOBALAMIN [Concomitant]
     Active Substance: METHYLCOBALAMIN
     Indication: Product used for unknown indication
     Dosage: UNK
     Route: 048
     Dates: start: 20231020, end: 20231106
  7. PENICILLIN G [Concomitant]
     Active Substance: PENICILLIN G
     Indication: Product used for unknown indication
     Dosage: 4000000 DOSAGE FORM, 6 TIMES A DAY
     Route: 065
     Dates: start: 20231005, end: 20231106
  8. CLINDAMYCIN [Concomitant]
     Active Substance: CLINDAMYCIN
     Indication: Product used for unknown indication
     Dosage: 600 MILLIGRAM, TID
     Route: 065
     Dates: start: 20231005, end: 20231106

REACTIONS (3)
  - Agranulocytosis [Recovered/Resolved]
  - White blood cell count decreased [Recovered/Resolved]
  - Neutrophil count decreased [Recovered/Resolved]

NARRATIVE: CASE EVENT DATE: 20231027
